FAERS Safety Report 11277175 (Version 3)
Quarter: 2015Q3

REPORT INFORMATION
  Report Type: Report from Study
  Country: US (occurrence: US)
  Receive Date: 20150716
  Receipt Date: 20150824
  Transmission Date: 20151125
  Serious: Yes (Hospitalization, Other)
  Sender: FDA-Public Use
  Company Number: US-ALEXION PHARMACEUTICALS INC.-A201502598

PATIENT

DRUGS (3)
  1. VERSED [Suspect]
     Active Substance: MIDAZOLAM HYDROCHLORIDE
     Indication: PRODUCT USED FOR UNKNOWN INDICATION
     Route: 065
  2. EFFEXOR [Concomitant]
     Active Substance: VENLAFAXINE HYDROCHLORIDE
     Indication: PRODUCT USED FOR UNKNOWN INDICATION
     Route: 065
  3. SOLIRIS [Suspect]
     Active Substance: ECULIZUMAB
     Indication: HAEMOLYTIC URAEMIC SYNDROME
     Dosage: UNK
     Route: 042

REACTIONS (14)
  - Fatigue [Not Recovered/Not Resolved]
  - Flank pain [Unknown]
  - Blood creatinine abnormal [Unknown]
  - Cystitis noninfective [Unknown]
  - Blood creatinine abnormal [Unknown]
  - Abdominal pain [Unknown]
  - Haemorrhage [Unknown]
  - Urinary tract inflammation [Unknown]
  - Respiratory distress [Recovered/Resolved]
  - Platelet count abnormal [Unknown]
  - Pain [Unknown]
  - Bladder pain [Not Recovered/Not Resolved]
  - Haematuria [Recovering/Resolving]
  - White blood cell count abnormal [Unknown]

NARRATIVE: CASE EVENT DATE: 20150730
